FAERS Safety Report 10803947 (Version 1)
Quarter: 2015Q1

REPORT INFORMATION
  Report Type: Not Available
  Country: IT (occurrence: IT)
  Receive Date: 20150217
  Receipt Date: 20150217
  Transmission Date: 20150721
  Serious: Yes (Other)
  Sender: FDA-Public Use
  Company Number: IT-CELGENE-083-20785-13121094

PATIENT

DRUGS (1)
  1. THALIDOMIDE [Suspect]
     Active Substance: THALIDOMIDE
     Indication: CROHN^S DISEASE
     Route: 048

REACTIONS (17)
  - Hemianopia [Recovered/Resolved]
  - Bradycardia [Unknown]
  - Somnolence [Recovered/Resolved]
  - Colitis ulcerative [Unknown]
  - Vertigo [Recovered/Resolved]
  - Asthenia [Recovered/Resolved]
  - Dermatitis [Unknown]
  - Gynaecomastia [Unknown]
  - Agitation [Unknown]
  - Headache [Recovered/Resolved]
  - Constipation [Unknown]
  - Neuropathy peripheral [Recovered/Resolved]
  - Chest pain [Recovered/Resolved]
  - Pruritus [Unknown]
  - Hallucination [Unknown]
  - Disturbance in attention [Recovered/Resolved]
  - Visual field defect [Recovered/Resolved]
